FAERS Safety Report 13500189 (Version 2)
Quarter: 2018Q2

REPORT INFORMATION
  Report Type: Report from Study
  Country: US (occurrence: US)
  Receive Date: 20170501
  Receipt Date: 20180423
  Transmission Date: 20180711
  Serious: No
  Sender: FDA-Public Use
  Company Number: US-009507513-1704USA004535

PATIENT
  Sex: Female
  Weight: 60.32 kg

DRUGS (2)
  1. IMPLANON [Suspect]
     Active Substance: ETONOGESTREL
     Dosage: 1 ROD FOR 3 YEARS
     Route: 059
  2. IMPLANON [Suspect]
     Active Substance: ETONOGESTREL
     Dosage: 1 ROD FOR 3 YEARS
     Route: 059

REACTIONS (4)
  - Product quality issue [Unknown]
  - Complication associated with device [Unknown]
  - Device difficult to use [Recovered/Resolved]
  - Incorrect drug administration duration [Unknown]
